FAERS Safety Report 7650700-5 (Version None)
Quarter: 2011Q3

REPORT INFORMATION
  Report Type: 
  Country: None (occurrence: None)
  Receive Date: 20110802
  Receipt Date: 20110721
  Transmission Date: 20111222
  Serious: Yes (Hospitalization)
  Sender: FDA-Public Use
  Company Number: CA-JNJFOC-20110512077

PATIENT
  Sex: Male
  Weight: 99 kg

DRUGS (14)
  1. TYLENOL W/ CODEINE [Concomitant]
  2. CLONAZEPAM [Concomitant]
  3. METOPROLOL TARTRATE [Concomitant]
  4. LOPERAMIDE HCL [Concomitant]
  5. REMICADE [Suspect]
     Indication: COLITIS ULCERATIVE
     Route: 042
     Dates: start: 20080501, end: 20110201
  6. LOMOTIL [Concomitant]
  7. CODEINE SULFATE [Concomitant]
  8. EFFEXOR [Concomitant]
     Dosage: 150 MG + 15 MG IN THE MORNING
  9. MIRTAZAPINE [Concomitant]
     Dosage: 30 MG + 35 MG AT NIGHT
  10. RABEPRAZOLE SODIUM [Concomitant]
  11. CLONAZEPAM [Concomitant]
  12. DETROL LA [Concomitant]
  13. OLANZAPINE [Concomitant]
  14. DOMPERIDONE [Concomitant]

REACTIONS (2)
  - LUNG NEOPLASM MALIGNANT [None]
  - HEPATIC NEOPLASM MALIGNANT [None]
